FAERS Safety Report 5901141-X (Version None)
Quarter: 2008Q3

REPORT INFORMATION
  Report Type: 
  Country: None (occurrence: None)
  Receive Date: 20080929
  Receipt Date: 20080919
  Transmission Date: 20090109
  Serious: Yes (Hospitalization)
  Sender: FDA-Public Use
  Company Number: US-AMGEN-US306021

PATIENT
  Sex: Female

DRUGS (2)
  1. ENBREL [Suspect]
     Indication: RHEUMATOID ARTHRITIS
     Route: 065
     Dates: start: 20030806, end: 20060119
  2. REMICADE [Suspect]
     Route: 065
     Dates: start: 20060207, end: 20061108

REACTIONS (2)
  - CHEST PAIN [None]
  - RENAL FAILURE [None]
